FAERS Safety Report 7693476-8 (Version None)
Quarter: 2011Q3

REPORT INFORMATION
  Report Type: 
  Country: None (occurrence: None)
  Receive Date: 20110819
  Receipt Date: 20110819
  Transmission Date: 20111222
  Serious: No
  Sender: FDA-Public Use
  Company Number: None

PATIENT
  Sex: Female
  Weight: 65.8 kg

DRUGS (1)
  1. BUPIVACAINE HCL [Suspect]
     Indication: PRODUCT QUALITY ISSUE
     Dosage: 1.4 ML -10.5 MG-
     Route: 037
     Dates: start: 20110817, end: 20110817

REACTIONS (1)
  - DRUG INEFFECTIVE [None]
